FAERS Safety Report 5811872-8 (Version None)
Quarter: 2008Q3

REPORT INFORMATION
  Report Type: 
  Country: None (occurrence: None)
  Receive Date: 20080711
  Receipt Date: 20080630
  Transmission Date: 20090109
  Serious: Yes (Hospitalization)
  Sender: FDA-Public Use
  Company Number: WAES 0807USA00178

PATIENT
  Age: 25 Year
  Sex: Male

DRUGS (17)
  1. DECADRON [Suspect]
     Dosage: 4 MG/DAILY; 40 MG/DAILY
     Route: 048
     Dates: start: 20071129, end: 20071129
  2. DECADRON [Suspect]
     Dosage: 4 MG/DAILY; 40 MG/DAILY
     Route: 048
     Dates: start: 20071129, end: 20071201
  3. HABEKACIN (ARBEKACIN) [Suspect]
     Dosage: 200 MG/DAILY
     Dates: start: 20071209, end: 20071214
  4. CARBENIN (BETAMIPRON (+) PANIP [Suspect]
     Indication: PNEUMONIA BACTERIAL
     Dosage: 200 MG/DAILY
     Route: 042
     Dates: start: 20070927, end: 20071024
  5. CARBENIN (BETAMIPRON (+) PANIP [Suspect]
     Indication: PNEUMONIA BACTERIAL
     Dosage: 200 MG/DAILY
     Route: 042
     Dates: start: 20071205
  6. CLINDAMYCIN HCL [Suspect]
     Dosage: 1200 MG/DAILY
     Dates: start: 20071208, end: 20071216
  7. VEPESID [Suspect]
     Dosage: 170 MG/DAILY
     Route: 042
     Dates: start: 20071129, end: 20071201
  8. CYTARABINE [Suspect]
     Dosage: 3360 MG/DAILY
     Dates: start: 20071129, end: 20071201
  9. METHOTREXATE SODIUM [Suspect]
     Dosage: 15 MG/DAILY
     Dates: start: 20071129, end: 20071129
  10. AMBISOME [Concomitant]
  11. LEVOFLOXACIN [Concomitant]
  12. FUNGIZONE [Concomitant]
  13. FUNGUARD [Concomitant]
  14. ITRIZOLE [Concomitant]
  15. TAKEPRON [Concomitant]
  16. HEPARIN [Concomitant]
  17. VANCOMYCIN [Concomitant]

REACTIONS (13)
  - ANAEMIA [None]
  - CANCER PAIN [None]
  - DRUG EFFECT DECREASED [None]
  - HICCUPS [None]
  - HYPOKALAEMIA [None]
  - MICTURITION DISORDER [None]
  - NEUTROPENIA [None]
  - OEDEMA PERIPHERAL [None]
  - PNEUMONIA BACTERIAL [None]
  - PSEUDOMEMBRANOUS COLITIS [None]
  - RENAL IMPAIRMENT [None]
  - SUBCLAVIAN VEIN THROMBOSIS [None]
  - THROMBOCYTOPENIA [None]
